FAERS Safety Report 16986702 (Version 1)
Quarter: 2019Q4

REPORT INFORMATION
  Report Type: Spontaneous
  Country: US (occurrence: US)
  Receive Date: 20191009
  Receipt Date: 20191009
  Transmission Date: 20200122
  Serious: Yes (Life-Threatening, Hospitalization, Disabling)
  Sender: FDA-Public Use
  Company Number: None

PATIENT
  Age: 37 Year
  Sex: Female
  Weight: 60.75 kg

DRUGS (3)
  1. STERILE WATER FOR INJECTION [Suspect]
     Active Substance: WATER
     Indication: PREOPERATIVE CARE
     Route: 042
     Dates: start: 20191001, end: 20191001
  2. MULTI-VITAMIN [Concomitant]
     Active Substance: .ALPHA.-TOCOPHEROL ACETATE, DL-\ASCORBIC ACID\CYANOCOBALAMIN\FLUORIDE ION\FOLIC ACID\NIACIN\PYRIDOXINE\RIBOFLAVIN\THIAMINE\VITAMIN A\VITAMIN D
  3. STERILE WATER FOR INHALATION [Suspect]
     Active Substance: WATER
     Indication: PREOPERATIVE CARE
     Route: 042
     Dates: start: 20191001, end: 20191001

REACTIONS (17)
  - Renal impairment [None]
  - Renal haematoma [None]
  - Acute kidney injury [None]
  - Wrong product stored [None]
  - Procedural haemorrhage [None]
  - Vomiting [None]
  - Retching [None]
  - Blood creatinine increased [None]
  - Medication error [None]
  - Product administration error [None]
  - Anuria [None]
  - Contraindicated product administered [None]
  - Near death experience [None]
  - Haemodialysis [None]
  - Haemolysis [None]
  - Blood pressure increased [None]
  - Infusion related reaction [None]

NARRATIVE: CASE EVENT DATE: 20191001
